FAERS Safety Report 4955732-3 (Version None)
Quarter: 2006Q1

REPORT INFORMATION
  Report Type: 
  Country: None (occurrence: None)
  Receive Date: 20060328
  Receipt Date: 20060316
  Transmission Date: 20060701
  Serious: Yes (Death, Life-Threatening)
  Sender: FDA-Public Use
  Company Number: AU-ROCHE-440811

PATIENT
  Age: 82 Year
  Sex: Female

DRUGS (3)
  1. ROCEPHIN [Suspect]
     Indication: PNEUMONIA
     Route: 042
     Dates: start: 20051104, end: 20051104
  2. ROCEPHIN [Suspect]
     Route: 042
     Dates: start: 20051105, end: 20051107
  3. SPORAHEXAL [Suspect]
     Indication: PNEUMONIA
     Route: 048
     Dates: start: 20051107, end: 20051107

REACTIONS (7)
  - ARTHRALGIA [None]
  - DEATH [None]
  - FACE OEDEMA [None]
  - PERIORBITAL OEDEMA [None]
  - PYREXIA [None]
  - SERUM SICKNESS [None]
  - URTICARIA [None]
